FAERS Safety Report 8889362 (Version 1)
Quarter: 2012Q4

REPORT INFORMATION
  Report Type: Spontaneous
  Country: US (occurrence: None)
  Receive Date: 20121102
  Receipt Date: 20121102
  Transmission Date: 20130627
  Serious: Yes (Other)
  Sender: FDA-Public Use
  Company Number: None

PATIENT
  Age: 22 Year
  Sex: Female
  Weight: 50.8 kg

DRUGS (4)
  1. NITAZOXANIDE [Suspect]
     Indication: AMOEBIASIS
     Route: 048
     Dates: start: 20121029, end: 20121031
  2. ALBUTEROL INHALER [Suspect]
  3. PEDIAFLOR [Concomitant]
  4. MULTIVITAMIN [Concomitant]

REACTIONS (3)
  - Myalgia [None]
  - Gait disturbance [None]
  - Muscle spasms [None]
